FAERS Safety Report 12238580 (Version 1)
Quarter: 2016Q2

REPORT INFORMATION
  Report Type: Spontaneous
  Country: US (occurrence: None)
  Receive Date: 20160404
  Receipt Date: 20160404
  Transmission Date: 20160815
  Serious: No
  Sender: FDA-Public Use
  Company Number: None

PATIENT
  Age: 68 Year
  Sex: Female

DRUGS (1)
  1. PROLIA [Suspect]
     Active Substance: DENOSUMAB
     Indication: OSTEOPOROSIS
     Dosage: 60MG ONCE EVERY 6 MONTHS SUBQ
     Route: 058
     Dates: start: 20150804

REACTIONS (4)
  - Rash [None]
  - Paraesthesia [None]
  - Arthralgia [None]
  - Gastrooesophageal reflux disease [None]
